FAERS Safety Report 6247411-X (Version None)
Quarter: 2009Q2

REPORT INFORMATION
  Report Type: 
  Country: None (occurrence: None)
  Receive Date: 20090626
  Receipt Date: 20090617
  Transmission Date: 20091009
  Serious: Yes (Hospitalization)
  Sender: FDA-Public Use
  Company Number: DE-PFIZER INC-2009203668

PATIENT
  Age: 70 Year

DRUGS (7)
  1. INSPRA [Suspect]
     Indication: MYOCARDIAL INFARCTION
     Dosage: UNK
     Route: 048
     Dates: start: 20060101
  2. MARCUMAR [Suspect]
  3. THYROID HORMONES [Suspect]
  4. SIMVASTATIN [Suspect]
     Dosage: UNK
  5. BISOPROLOL [Concomitant]
     Dosage: UNK
  6. TORASEMIDE [Concomitant]
     Dosage: UNK
  7. DIGITALIS [Concomitant]
     Dosage: UNK

REACTIONS (1)
  - HEPATOTOXICITY [None]
